FAERS Safety Report 5468202-3 (Version None)
Quarter: 2007Q3

REPORT INFORMATION
  Report Type: 
  Country: None (occurrence: None)
  Receive Date: 20070926
  Receipt Date: 20070920
  Transmission Date: 20080115
  Serious: Yes (Hospitalization, Other)
  Sender: FDA-Public Use
  Company Number: PHBS2007JP12110

PATIENT
  Sex: Female
  Weight: 61 kg

DRUGS (5)
  1. FEMARA [Suspect]
     Indication: BREAST CANCER
     Dosage: 2.5 MG/D
     Route: 048
     Dates: start: 20061128, end: 20070702
  2. TAXOTERE [Concomitant]
     Route: 065
     Dates: start: 20070726
  3. MAGMITT KENEI [Concomitant]
     Dosage: 3 DF/D
     Route: 048
  4. FLOMOX [Concomitant]
     Dosage: 3 DF/D
     Route: 048
  5. LANIRAPID [Concomitant]
     Dosage: 1 DF/D
     Route: 048

REACTIONS (9)
  - ALANINE AMINOTRANSFERASE INCREASED [None]
  - ASPARTATE AMINOTRANSFERASE INCREASED [None]
  - HAEMATOCRIT DECREASED [None]
  - HAEMOGLOBIN DECREASED [None]
  - METASTASES TO BONE MARROW [None]
  - PANCYTOPENIA [None]
  - PLATELET COUNT DECREASED [None]
  - RED BLOOD CELL COUNT DECREASED [None]
  - WHITE BLOOD CELL COUNT DECREASED [None]
